FAERS Safety Report 18776459 (Version 2)
Quarter: 2021Q1

REPORT INFORMATION
  Report Type: Report from Study
  Country: IT (occurrence: IT)
  Receive Date: 20210122
  Receipt Date: 20210308
  Transmission Date: 20210419
  Serious: Yes (Other)
  Sender: FDA-Public Use
  Company Number: IT-INCYTE CORPORATION-2020IN013140

PATIENT

DRUGS (10)
  1. JAKAVI [Suspect]
     Active Substance: RUXOLITINIB
     Dosage: 40 UNK
     Route: 065
     Dates: start: 20171129, end: 20171217
  2. JAKAVI [Suspect]
     Active Substance: RUXOLITINIB
     Dosage: 40 UNK
     Route: 065
     Dates: start: 20171222, end: 20180118
  3. JAKAVI [Suspect]
     Active Substance: RUXOLITINIB
     Dosage: 40 UNK
     Route: 065
     Dates: start: 20190426, end: 20190521
  4. JAKAVI [Suspect]
     Active Substance: RUXOLITINIB
     Dosage: 20 UNK
     Route: 065
     Dates: start: 20171218, end: 20171221
  5. JAKAVI [Suspect]
     Active Substance: RUXOLITINIB
     Dosage: 30 UNK
     Route: 065
     Dates: start: 20180119, end: 20180206
  6. JAKAVI [Suspect]
     Active Substance: RUXOLITINIB
     Dosage: 20 UNK
     Route: 065
     Dates: start: 20200109
  7. JAKAVI [Suspect]
     Active Substance: RUXOLITINIB
     Dosage: 30 UNK
     Route: 065
     Dates: start: 20190522, end: 20200108
  8. JAKAVI [Suspect]
     Active Substance: RUXOLITINIB
     Indication: MYELOFIBROSIS
     Dosage: 40 UNK
     Route: 065
     Dates: start: 20171111, end: 20171116
  9. JAKAVI [Suspect]
     Active Substance: RUXOLITINIB
     Dosage: 40 UNK
     Route: 065
     Dates: start: 20180207, end: 20180718
  10. JAKAVI [Suspect]
     Active Substance: RUXOLITINIB
     Dosage: 30 UNK
     Route: 065
     Dates: start: 20180719, end: 20190425

REACTIONS (4)
  - Bowen^s disease [Recovering/Resolving]
  - Neoplasm [Recovering/Resolving]
  - Squamous cell carcinoma [Recovered/Resolved]
  - Seborrhoeic keratosis [Unknown]

NARRATIVE: CASE EVENT DATE: 20201014
